FAERS Safety Report 4285033-0 (Version None)
Quarter: 2004Q1

REPORT INFORMATION
  Report Type: 
  Country: None (occurrence: None)
  Receive Date: 20040204
  Receipt Date: 20040121
  Transmission Date: 20041129
  Serious: Yes (Hospitalization)
  Sender: FDA-Public Use
  Company Number: WAES 0401DEU00089

PATIENT
  Age: 65 Year
  Sex: Male
  Weight: 60 kg

DRUGS (3)
  1. GLYBURIDE [Suspect]
     Indication: DIABETES MELLITUS NON-INSULIN-DEPENDENT
     Route: 048
     Dates: start: 19950101, end: 20030901
  2. METFORMIN HYDROCHLORIDE [Suspect]
     Indication: DIABETES MELLITUS NON-INSULIN-DEPENDENT
     Route: 048
     Dates: start: 19950101, end: 20030901
  3. ZOCOR [Suspect]
     Indication: HYPERLIPIDAEMIA
     Route: 048
     Dates: start: 20030501, end: 20030901

REACTIONS (7)
  - HAEMATOCRIT DECREASED [None]
  - HAEMOGLOBIN DECREASED [None]
  - HEPATITIS CHRONIC ACTIVE [None]
  - HEPATOSPLENOMEGALY [None]
  - PLATELET COUNT DECREASED [None]
  - WEIGHT DECREASED [None]
  - WHITE BLOOD CELL COUNT DECREASED [None]
